FAERS Safety Report 9738795 (Version 2)
Quarter: 2014Q2

REPORT INFORMATION
  Report Type: Spontaneous
  Country: PR (occurrence: PR)
  Receive Date: 20131209
  Receipt Date: 20140404
  Transmission Date: 20141212
  Serious: No
  Sender: FDA-Public Use
  Company Number: PR-BAYER-2013-149956

PATIENT
  Sex: Female
  Weight: 7 kg

DRUGS (1)
  1. GADAVIST [Suspect]
     Indication: BONE PAIN
     Dosage: UNK UNK, ONCE
     Route: 042
     Dates: start: 20131109, end: 20131109

REACTIONS (5)
  - Rash [Recovered/Resolved]
  - Erythema [Recovered/Resolved]
  - Urticaria [Recovered/Resolved]
  - Pruritus [Recovered/Resolved]
  - Pain [None]
